FAERS Safety Report 4721636-4 (Version None)
Quarter: 2005Q3

REPORT INFORMATION
  Report Type: 
  Country: None (occurrence: None)
  Receive Date: 20050721
  Receipt Date: 20050127
  Transmission Date: 20060218
  Serious: Yes (Hospitalization)
  Sender: FDA-Public Use
  Company Number: US-BRISTOL-MYERS SQUIBB COMPANY-12840328

PATIENT
  Age: 73 Year
  Sex: Female
  Weight: 104 kg

DRUGS (11)
  1. COUMADIN [Suspect]
     Route: 048
     Dates: end: 20050126
  2. LASIX [Concomitant]
  3. TOPROL-XL [Concomitant]
     Dosage: FOR ^A WHILE^
  4. RISPERDAL [Concomitant]
  5. DURAGESIC-100 [Concomitant]
     Dosage: 75 ^MG^ EVERY 72 HOURS
  6. PROTONIX [Concomitant]
  7. K-DUR 20 [Concomitant]
  8. MULTI-VITAMIN [Concomitant]
  9. ASCORBIC ACID [Concomitant]
  10. ZINC SULFATE [Concomitant]
  11. FERROUS SULFATE TAB [Concomitant]

REACTIONS (1)
  - INTERNATIONAL NORMALISED RATIO INCREASED [None]
